FAERS Safety Report 8528493-9 (Version None)
Quarter: 2012Q3

REPORT INFORMATION
  Report Type: 
  Country: None (occurrence: None)
  Receive Date: 20120723
  Receipt Date: 20120713
  Transmission Date: 20120928
  Serious: Yes (Other)
  Sender: FDA-Public Use
  Company Number: GB-AMGEN-GBRSP2012044495

PATIENT
  Age: 58 Year
  Sex: Male
  Weight: 109 kg

DRUGS (6)
  1. ENBREL [Suspect]
     Indication: RHEUMATOID ARTHRITIS
     Dosage: 50 MG, UNK
     Route: 058
     Dates: start: 20110822, end: 20120425
  2. PREDNISOLONE [Concomitant]
     Dosage: UNK UNK, UNK
  3. RAMIPRIL [Concomitant]
     Dosage: UNK UNK, UNK
  4. ATENOLOL [Concomitant]
     Dosage: UNK UNK, UNK
  5. IBUPROFEN [Concomitant]
     Dosage: UNK UNK, UNK
  6. ACETAMINOPHEN [Concomitant]
     Dosage: UNK UNK, UNK

REACTIONS (3)
  - OEDEMA PERIPHERAL [None]
  - LOCALISED OEDEMA [None]
  - DYSPNOEA [None]
